FAERS Safety Report 5505234-0 (Version None)
Quarter: 2007Q4

REPORT INFORMATION
  Report Type: 
  Country: None (occurrence: None)
  Receive Date: 20071102
  Receipt Date: 20070328
  Transmission Date: 20080405
  Serious: No
  Sender: FDA-Public Use
  Company Number: US-KINGPHARMUSA00001-K200500229

PATIENT

DRUGS (10)
  1. MENEST [Suspect]
     Indication: MENOPAUSE
     Dosage: .625 MG, QD
     Route: 048
     Dates: start: 19950101, end: 20050101
  2. MENEST [Suspect]
     Dosage: .3 MG, BID
     Dates: start: 20050101
  3. MENEST [Suspect]
     Dosage: .3 MG, QD
  4. MENEST [Suspect]
     Dosage: .3 MG, BID
  5. MENEST [Suspect]
     Dosage: .625 MG, QD
     Route: 048
     Dates: end: 20070201
  6. MENEST [Suspect]
     Dosage: .625 MG, QD
     Route: 048
     Dates: start: 20070325, end: 20070301
  7. VITAMINS NOS [Concomitant]
     Indication: VITAMIN SUPPLEMENTATION
     Dosage: UNK, QD
     Route: 048
  8. FLEXERIL                           /00428402/ [Concomitant]
  9. TETRACYCLINE [Concomitant]
  10. ALLERGY PILL [Concomitant]

REACTIONS (7)
  - CHILLS [None]
  - DRUG INEFFECTIVE [None]
  - HOT FLUSH [None]
  - INSOMNIA [None]
  - IRRITABILITY [None]
  - NAUSEA [None]
  - TREMOR [None]
